FAERS Safety Report 12543888 (Version 1)
Quarter: 2016Q3

REPORT INFORMATION
  Report Type: Report from Study
  Country: FR (occurrence: FR)
  Receive Date: 20160711
  Receipt Date: 20160711
  Transmission Date: 20161109
  Serious: Yes (Hospitalization)
  Sender: FDA-Public Use
  Company Number: FR-ROCHE-1495559

PATIENT
  Age: 49 Year
  Sex: Male
  Weight: 60 kg

DRUGS (7)
  1. PARACETAMOL [Concomitant]
     Active Substance: ACETAMINOPHEN
     Indication: PAIN
     Route: 048
     Dates: start: 20141007
  2. ATEZOLIZUMAB [Suspect]
     Active Substance: ATEZOLIZUMAB
     Indication: NON-SMALL CELL LUNG CANCER
     Dosage: MOST RECENT DOSE PRIOR TO THE SUPERIOR VENA CAVA SYNDROME WAS ON 04/NOV/2014.?MOST RECENT DOSE PRIOR
     Route: 042
     Dates: start: 20141014
  3. RED BLOOD CELLS [Concomitant]
     Active Substance: HUMAN RED BLOOD CELL
     Dosage: TRANSFUSION, 2 UNIT
     Route: 042
     Dates: start: 20141216, end: 20141216
  4. CARDENSIEL [Concomitant]
     Active Substance: BISOPROLOL FUMARATE
     Indication: PERICARDIAL EFFUSION
     Dosage: 1 UNIT
     Route: 048
     Dates: start: 20141212, end: 201412
  5. RED BLOOD CELLS [Concomitant]
     Active Substance: HUMAN RED BLOOD CELL
     Indication: ANAEMIA
     Dosage: TRANSFUSION, 1 UNIT
     Route: 042
     Dates: start: 20141122, end: 20141122
  6. RED BLOOD CELLS [Concomitant]
     Active Substance: HUMAN RED BLOOD CELL
     Dosage: TRANSFUSION, 1 UNIT
     Route: 042
     Dates: start: 20141126, end: 20141126
  7. CORDARONE [Concomitant]
     Active Substance: AMIODARONE HYDROCHLORIDE
     Indication: PERICARDIAL EFFUSION
     Route: 048
     Dates: start: 20141212, end: 201412

REACTIONS (3)
  - Infusion related reaction [Recovered/Resolved]
  - Cardiac tamponade [Recovered/Resolved]
  - Superior vena cava syndrome [Recovered/Resolved]

NARRATIVE: CASE EVENT DATE: 20141120
